FAERS Safety Report 9321078 (Version 1)
Quarter: 2013Q2

REPORT INFORMATION
  Report Type: Spontaneous
  Country: US (occurrence: US)
  Receive Date: 20130531
  Receipt Date: 20130531
  Transmission Date: 20140414
  Serious: Yes (Other)
  Sender: FDA-Public Use
  Company Number: US-ELI_LILLY_AND_COMPANY-US201305006311

PATIENT
  Sex: Female
  Weight: 121.9 kg

DRUGS (1)
  1. CYMBALTA [Suspect]
     Indication: OSTEOARTHRITIS
     Dosage: Q60 MG, QD
     Dates: start: 2006, end: 20130430

REACTIONS (14)
  - Dyspnoea [Unknown]
  - Swollen tongue [Unknown]
  - Stomatitis [Unknown]
  - Malaise [Unknown]
  - Influenza like illness [Unknown]
  - Vomiting [Unknown]
  - Cough [Unknown]
  - Dysphonia [Unknown]
  - Hyperhidrosis [Unknown]
  - Musculoskeletal stiffness [Unknown]
  - Burning sensation [Unknown]
  - Panic attack [Unknown]
  - Crying [Unknown]
  - Weight increased [Unknown]
